FAERS Safety Report 5532125-1 (Version None)
Quarter: 2007Q4

REPORT INFORMATION
  Report Type: 
  Country: None (occurrence: None)
  Receive Date: 20071203
  Receipt Date: 20071102
  Transmission Date: 20080405
  Serious: Yes (Other)
  Sender: FDA-Public Use
  Company Number: HQWYE282021JUL04

PATIENT
  Sex: Female

DRUGS (2)
  1. PREMPRO [Suspect]
  2. PREMARIN [Suspect]

REACTIONS (3)
  - BREAST CANCER [None]
  - THROMBOSIS [None]
  - TRANSIENT ISCHAEMIC ATTACK [None]
